FAERS Safety Report 5131509-3 (Version None)
Quarter: 2006Q4

REPORT INFORMATION
  Report Type: 
  Country: None (occurrence: None)
  Receive Date: 20061020
  Receipt Date: 20061011
  Transmission Date: 20070319
  Serious: Yes (Other)
  Sender: FDA-Public Use
  Company Number: US-SANOFI-SYNTHELABO-A03200606215

PATIENT
  Sex: Female
  Weight: 77.1 kg

DRUGS (3)
  1. METOPROLOL TARTRATE [Concomitant]
     Dosage: UNK
     Route: 048
  2. LISINOPRIL [Concomitant]
     Dosage: UNK
     Route: 048
  3. AMBIEN [Suspect]
     Indication: INSOMNIA
     Route: 048
     Dates: start: 20061004, end: 20061005

REACTIONS (4)
  - ARTHRALGIA [None]
  - CONTUSION [None]
  - HEAD INJURY [None]
  - WRIST FRACTURE [None]
